FAERS Safety Report 5929619-3 (Version None)
Quarter: 2008Q3

REPORT INFORMATION
  Report Type: 
  Country: None (occurrence: None)
  Receive Date: 20080922
  Receipt Date: 20071212
  Transmission Date: 20090109
  Serious: No
  Sender: FDA-Public Use
  Company Number: T200701549

PATIENT
  Age: 68 Year
  Sex: Male
  Weight: 83.9 kg

DRUGS (5)
  1. HYDROCODONE BITARTRATE + ACETAMINOPHEN [Suspect]
     Indication: PAIN
     Dosage: 1 TAB Q6 HRS OR PRN
     Dates: start: 20071221, end: 20071201
  2. CIPRO [Concomitant]
  3. ALBUTEROL /00139501/ (SALBUTAMOL) [Concomitant]
  4. ASPIRIN [Concomitant]
  5. HYDROCODONE BITARTRATE + ACETAMINOPHEN [Concomitant]

REACTIONS (2)
  - DRUG INEFFECTIVE [None]
  - INCORRECT DOSE ADMINISTERED [None]
